FAERS Safety Report 9175149 (Version 1)
Quarter: 2013Q1

REPORT INFORMATION
  Report Type: Spontaneous
  Country: US (occurrence: US)
  Receive Date: 20130320
  Receipt Date: 20130320
  Transmission Date: 20140127
  Serious: No
  Sender: FDA-Public Use
  Company Number: US-009507513-1303USA004763

PATIENT
  Age: 14 Year
  Sex: Female
  Weight: 49.89 kg

DRUGS (2)
  1. CLARITIN REDITABS [Suspect]
     Indication: HYPERSENSITIVITY
     Dosage: 10 MG, QD
     Route: 048
  2. CLARITIN REDITABS [Suspect]
     Dosage: 10 MG, BID
     Route: 048
     Dates: start: 20130307

REACTIONS (2)
  - Overdose [Unknown]
  - Inappropriate schedule of drug administration [Unknown]
